FAERS Safety Report 17173472 (Version 1)
Quarter: 2019Q4

REPORT INFORMATION
  Report Type: Spontaneous
  Country: JP (occurrence: JP)
  Receive Date: 20191219
  Receipt Date: 20191219
  Transmission Date: 20200122
  Serious: Yes (Other)
  Sender: FDA-Public Use
  Company Number: JP-ELI_LILLY_AND_COMPANY-JP201912008050

PATIENT
  Age: 65 Year
  Sex: Female

DRUGS (4)
  1. HYDANTOL F [Concomitant]
     Active Substance: CAFFEINE\PHENOBARBITAL\PHENYTOIN\SODIUM BENZOATE
     Dosage: 4 DOSAGE FORM
     Route: 048
  2. ZYPREXA ZYDIS [Suspect]
     Active Substance: OLANZAPINE
     Indication: PRODUCT USED FOR UNKNOWN INDICATION
     Dosage: 8.75 MG
     Route: 048
     Dates: start: 2017
  3. DEPAKENE [VALPROATE SODIUM] [Concomitant]
     Active Substance: VALPROATE SODIUM
     Route: 048
  4. DEPAS [ETIZOLAM] [Concomitant]
     Active Substance: ETIZOLAM
     Route: 048

REACTIONS (1)
  - Status epilepticus [Unknown]

NARRATIVE: CASE EVENT DATE: 201902
